FAERS Safety Report 8141958-7 (Version None)
Quarter: 2012Q1

REPORT INFORMATION
  Report Type: 
  Country: None (occurrence: None)
  Receive Date: 20120216
  Receipt Date: 20120125
  Transmission Date: 20120608
  Serious: Yes (Disabling)
  Sender: FDA-Public Use
  Company Number: DE-GLAXOSMITHKLINE-B0781439A

PATIENT
  Sex: Female
  Weight: 10 kg

DRUGS (2)
  1. ALKERAN [Suspect]
     Indication: RETINOBLASTOMA
     Route: 013
     Dates: start: 20111123
  2. UNKNOWN DRUG [Suspect]
     Indication: PRODUCT USED FOR UNKNOWN INDICATION
     Route: 065
     Dates: start: 20111123

REACTIONS (6)
  - RETINAL OEDEMA [None]
  - CHORIORETINAL ATROPHY [None]
  - RETINAL HAEMORRHAGE [None]
  - EYELID OEDEMA [None]
  - RETINAL VASCULAR DISORDER [None]
  - CHORIORETINAL DISORDER [None]
